FAERS Safety Report 9237613 (Version 1)
Quarter: 2013Q2

REPORT INFORMATION
  Report Type: Spontaneous
  Country: US (occurrence: US)
  Receive Date: 20130418
  Receipt Date: 20130418
  Transmission Date: 20140414
  Serious: No
  Sender: FDA-Public Use
  Company Number: US-009507513-1304USA007992

PATIENT
  Sex: Male
  Weight: 78.46 kg

DRUGS (6)
  1. VICTRELIS [Suspect]
     Dosage: 800 MG, Q8H
     Route: 048
  2. RIBAVIRIN [Suspect]
     Route: 048
  3. PEGASYS [Suspect]
  4. PAXIL [Concomitant]
  5. AMLODIPINE [Concomitant]
  6. ASACOL [Concomitant]

REACTIONS (1)
  - Influenza like illness [Unknown]
